FAERS Safety Report 15690022 (Version 1)
Quarter: 2018Q4

REPORT INFORMATION
  Report Type: Spontaneous
  Country: US (occurrence: US)
  Receive Date: 20181205
  Receipt Date: 20181205
  Transmission Date: 20190205
  Serious: Yes (Other)
  Sender: FDA-Public Use
  Company Number: US-NOVOPROD-593880

PATIENT
  Sex: Male

DRUGS (1)
  1. NOVOLIN N [Suspect]
     Active Substance: INSULIN HUMAN
     Indication: PRODUCT USED FOR UNKNOWN INDICATION
     Dosage: 90 U, UNK
     Route: 058

REACTIONS (3)
  - Blood glucose increased [Unknown]
  - Product dose omission [Unknown]
  - Decreased appetite [Unknown]

NARRATIVE: CASE EVENT DATE: 20180329
